FAERS Safety Report 7023920-0 (Version None)
Quarter: 2010Q4

REPORT INFORMATION
  Report Type: 
  Country: None (occurrence: None)
  Receive Date: 20101001
  Receipt Date: 20100917
  Transmission Date: 20110411
  Serious: Yes (Hospitalization)
  Sender: FDA-Public Use
  Company Number: FR-ELI_LILLY_AND_COMPANY-FR201007000453

PATIENT
  Sex: Female

DRUGS (3)
  1. PROZAC [Suspect]
     Indication: MAJOR DEPRESSION
     Dosage: 40 MG, DAILY (1/D)
     Route: 048
  2. NOCTAMIDE [Concomitant]
     Indication: INSOMNIA
     Dosage: 0.5 MG, DAILY (1/D)
     Route: 048
  3. DOLI RHUME [Concomitant]
     Indication: NASOPHARYNGITIS
     Dosage: UNK, UNKNOWN
     Route: 048

REACTIONS (9)
  - ASTHENIA [None]
  - BALANCE DISORDER [None]
  - CONFUSIONAL STATE [None]
  - ENCEPHALOPATHY [None]
  - HEADACHE [None]
  - HYPERREFLEXIA [None]
  - MYOCLONUS [None]
  - PHOTOPHOBIA [None]
  - TREMOR [None]
